FAERS Safety Report 5374572-7 (Version None)
Quarter: 2007Q2

REPORT INFORMATION
  Report Type: 
  Country: None (occurrence: None)
  Receive Date: 20070627
  Receipt Date: 20070627
  Transmission Date: 20071010
  Serious: No
  Sender: FDA-Public Use
  Company Number: None

PATIENT
  Age: 58 Year
  Sex: Male

DRUGS (1)
  1. DEXAMETHASONE 0.5MG TAB [Suspect]
     Indication: TENDONITIS
     Dosage: 4MG  OTHER  TOP
     Route: 061
     Dates: start: 20070607, end: 20070607

REACTIONS (1)
  - PHARYNGEAL OEDEMA [None]
